FAERS Safety Report 5383080-9 (Version None)
Quarter: 2007Q2

REPORT INFORMATION
  Report Type: 
  Country: None (occurrence: None)
  Receive Date: 20070629
  Receipt Date: 20061102
  Transmission Date: 20071010
  Serious: Yes (Other)
  Sender: FDA-Public Use
  Company Number: US200611000555

PATIENT
  Age: 81 Year
  Sex: Male

DRUGS (2)
  1. HUMALOG MIX 75/25 [Suspect]
     Indication: DIABETES MELLITUS
     Dosage: 40 U, EACH MORNING; 40 UNITS IN ARM, 4 UNITS IN PM; EACH EVENING
     Dates: end: 20061026
  2. HUMALOG MIX 75/25 [Suspect]
     Indication: DIABETES MELLITUS
     Dosage: 40 U, EACH MORNING; 40 UNITS IN ARM, 4 UNITS IN PM; EACH EVENING
     Dates: start: 20061027

REACTIONS (6)
  - BLOOD GLUCOSE DECREASED [None]
  - BLOOD GLUCOSE INCREASED [None]
  - MUSCLE SPASMS [None]
  - RENAL FAILURE [None]
  - TREMOR [None]
  - VISUAL ACUITY REDUCED [None]
